FAERS Safety Report 6621847-7 (Version None)
Quarter: 2010Q1

REPORT INFORMATION
  Report Type: 
  Country: None (occurrence: None)
  Receive Date: 20100223
  Receipt Date: 20091221
  Transmission Date: 20100710
  Serious: No
  Sender: FDA-Public Use
  Company Number: 003747

PATIENT

DRUGS (1)
  1. CIMZIA [Suspect]

REACTIONS (1)
  - OEDEMA PERIPHERAL [None]
